FAERS Safety Report 5041088-7 (Version None)
Quarter: 2006Q3

REPORT INFORMATION
  Report Type: 
  Country: None (occurrence: None)
  Receive Date: 20060703
  Receipt Date: 20060616
  Transmission Date: 20061208
  Serious: Yes (Hospitalization)
  Sender: FDA-Public Use
  Company Number: US-ROCHE-452104

PATIENT
  Age: 59 Year
  Sex: Female
  Weight: 49.9 kg

DRUGS (13)
  1. MYCOPHENOLATE MOFETIL [Suspect]
     Route: 048
     Dates: start: 20051231
  2. MYCOPHENOLATE MOFETIL [Suspect]
     Route: 048
  3. TACROLIMUS [Suspect]
     Route: 048
     Dates: start: 20051231
  4. TACROLIMUS [Suspect]
     Route: 048
     Dates: start: 20060612
  5. PREDNISONE [Suspect]
     Dosage: DOSE FORM REPORTED AS PILL
     Route: 048
     Dates: start: 20060104, end: 20060613
  6. BACTRIM [Concomitant]
     Dates: start: 20051231
  7. PROTONIX [Concomitant]
     Dates: start: 20060106
  8. LOVENOX [Concomitant]
     Dates: start: 20060202
  9. DIFLUCAN [Concomitant]
     Dates: start: 20060106
  10. MAGNESIUM OXIDE [Concomitant]
     Dates: start: 20060320
  11. FERROUS SULFATE TAB [Concomitant]
     Dates: start: 20060209
  12. FLORINEF [Concomitant]
     Dates: start: 20060320
  13. LANTUS [Concomitant]
     Dosage: DRUG NAME REPORTED AS LANTUS INSULIN
     Dates: start: 20060202

REACTIONS (1)
  - PNEUMONIA [None]
